FAERS Safety Report 4769032-8 (Version None)
Quarter: 2005Q3

REPORT INFORMATION
  Report Type: 
  Country: None (occurrence: None)
  Receive Date: 20050915
  Receipt Date: 20050902
  Transmission Date: 20060218
  Serious: Yes (Death)
  Sender: FDA-Public Use
  Company Number: US-JNJFOC-20050901263

PATIENT
  Sex: Female

DRUGS (19)
  1. REMICADE [Suspect]
     Route: 042
  2. REMICADE [Suspect]
     Indication: RHEUMATOID ARTHRITIS
     Route: 042
  3. ADVAIR DISKUS 100/50 [Concomitant]
  4. ADVAIR DISKUS 100/50 [Concomitant]
  5. QVAR 40 [Concomitant]
  6. ALBUTEROL [Concomitant]
  7. METHOTREXATE [Concomitant]
  8. VICODIN [Concomitant]
  9. VICODIN [Concomitant]
  10. PREDNISONE [Concomitant]
  11. INH [Concomitant]
  12. ZYRTEC [Concomitant]
  13. BECLOMETHASONE DIPROPIONATE [Concomitant]
  14. FOLATE [Concomitant]
  15. VITAMIN B6 [Concomitant]
  16. FENTANYL [Concomitant]
  17. FENTANYL [Concomitant]
  18. FENTANYL [Concomitant]
  19. FENTANYL [Concomitant]

REACTIONS (2)
  - CARDIAC FAILURE [None]
  - CARDIO-RESPIRATORY ARREST [None]
